FAERS Safety Report 7575158-6 (Version None)
Quarter: 2011Q2

REPORT INFORMATION
  Report Type: 
  Country: None (occurrence: None)
  Receive Date: 20110627
  Receipt Date: 20110620
  Transmission Date: 20111010
  Serious: Yes (Hospitalization, Disabling, Other)
  Sender: FDA-Public Use
  Company Number: US-BAYER-2011-053843

PATIENT
  Sex: Female

DRUGS (3)
  1. DROSPIRENONE AND ETHINYL ESTRADIOL [Suspect]
     Indication: PRODUCT USED FOR UNKNOWN INDICATION
     Dosage: UNK
     Dates: start: 20090101
  2. YAZ [Suspect]
     Indication: PRODUCT USED FOR UNKNOWN INDICATION
     Dosage: UNK
     Dates: start: 20070101, end: 20090101
  3. YASMIN [Suspect]
     Indication: PRODUCT USED FOR UNKNOWN INDICATION
     Dosage: UNK
     Dates: start: 20060101, end: 20070101

REACTIONS (6)
  - DEEP VEIN THROMBOSIS [None]
  - INJURY [None]
  - ANXIETY [None]
  - PULMONARY EMBOLISM [None]
  - PAIN [None]
  - ANHEDONIA [None]
